FAERS Safety Report 21140849 (Version 2)
Quarter: 2022Q3

REPORT INFORMATION
  Report Type: Spontaneous
  Country: US (occurrence: US)
  Receive Date: 20220728
  Receipt Date: 20220731
  Transmission Date: 20221027
  Serious: Yes (Other)
  Sender: FDA-Public Use
  Company Number: US-JNJFOC-20220737917

PATIENT
  Age: 73 Year
  Sex: Male
  Weight: 65.8 kg

DRUGS (6)
  1. OPSUMIT [Suspect]
     Active Substance: MACITENTAN
     Indication: Product used for unknown indication
     Route: 048
  2. OFEV [Suspect]
     Active Substance: NINTEDANIB
     Indication: HIV infection
     Route: 048
     Dates: start: 20190629
  3. OFEV [Suspect]
     Active Substance: NINTEDANIB
     Indication: Idiopathic pulmonary fibrosis
     Route: 048
     Dates: start: 20190629
  4. TYVASO [Suspect]
     Active Substance: TREPROSTINIL
     Indication: Pulmonary arterial hypertension
     Route: 055
     Dates: start: 20210624
  5. TADALAFIL [Concomitant]
     Active Substance: TADALAFIL
  6. SILDENAFIL CITRATE [Concomitant]
     Active Substance: SILDENAFIL CITRATE

REACTIONS (9)
  - Pulmonary arterial hypertension [Unknown]
  - Nasopharyngitis [Unknown]
  - Decreased appetite [Unknown]
  - Sensation of foreign body [Unknown]
  - Gastric disorder [Unknown]
  - Arthralgia [Unknown]
  - Muscle spasms [Unknown]
  - Seasonal allergy [Unknown]
  - Extra dose administered [Unknown]

NARRATIVE: CASE EVENT DATE: 20220103
